FAERS Safety Report 6437284-4 (Version None)
Quarter: 2009Q4

REPORT INFORMATION
  Report Type: 
  Country: None (occurrence: None)
  Receive Date: 20091112
  Receipt Date: 20091106
  Transmission Date: 20100525
  Serious: Yes (Hospitalization)
  Sender: FDA-Public Use
  Company Number: FR-BRISTOL-MYERS SQUIBB COMPANY-14690002

PATIENT
  Age: 45 Year
  Sex: Female
  Weight: 62 kg

DRUGS (3)
  1. CETUXIMAB [Suspect]
     Indication: CERVIX CARCINOMA
     Dosage: MOST RECENT ADMINISTRATION ON 22JUN09
     Route: 042
     Dates: start: 20090602
  2. CISPLATIN [Suspect]
     Indication: CERVIX CARCINOMA
     Dosage: MOST RECENT ADMINISTRATION ON 22JUN09
     Route: 042
     Dates: start: 20090602
  3. RADIOTHERAPY [Suspect]
     Indication: CERVIX CARCINOMA
     Dosage: 1 DF = 1.8 GY MOST RECENT ADMINISTRATION ON 22JUN09
     Route: 042
     Dates: start: 20090608

REACTIONS (2)
  - NAUSEA [None]
  - SKIN REACTION [None]
